FAERS Safety Report 12488257 (Version 1)
Quarter: 2016Q2

REPORT INFORMATION
  Report Type: Spontaneous
  Country: GB (occurrence: GB)
  Receive Date: 20160622
  Receipt Date: 20160622
  Transmission Date: 20160815
  Serious: Yes (Other)
  Sender: FDA-Public Use
  Company Number: GB-GLAXOSMITHKLINE-B0361074A

PATIENT
  Age: 31 Year
  Sex: Female

DRUGS (7)
  1. PAROXETINE. [Suspect]
     Active Substance: PAROXETINE
     Indication: PRODUCT USED FOR UNKNOWN INDICATION
     Dosage: 20 MG, QD
     Route: 065
     Dates: start: 20021002
  2. PROZAC [Concomitant]
     Active Substance: FLUOXETINE HYDROCHLORIDE
     Dates: start: 19970106, end: 20011122
  3. VENLAFAXINE [Concomitant]
     Active Substance: VENLAFAXINE HYDROCHLORIDE
  4. EFFEXOR [Concomitant]
     Active Substance: VENLAFAXINE HYDROCHLORIDE
     Dates: start: 19990330
  5. DICLOFENAC SODIUM. [Concomitant]
     Active Substance: DICLOFENAC SODIUM
  6. SEROXAT [Suspect]
     Active Substance: PAROXETINE HYDROCHLORIDE
     Indication: DEPRESSION
     Dosage: 10 MG, QD
     Route: 065
     Dates: start: 20020204, end: 20140330
  7. DIAZEPAM. [Concomitant]
     Active Substance: DIAZEPAM
     Dates: start: 20050621

REACTIONS (22)
  - Self esteem decreased [Unknown]
  - Tearfulness [Unknown]
  - Suicidal ideation [Unknown]
  - Feeling abnormal [Unknown]
  - Depressed mood [Unknown]
  - Headache [Unknown]
  - Vertigo [Unknown]
  - Drug withdrawal syndrome [Unknown]
  - Dizziness [Unknown]
  - Paraesthesia [Unknown]
  - Adverse drug reaction [Unknown]
  - Disturbance in attention [Unknown]
  - Abdominal pain upper [Unknown]
  - Nausea [Unknown]
  - Depression [Unknown]
  - Crying [Unknown]
  - Anxiety [Unknown]
  - Panic attack [Unknown]
  - Dyskinesia [Unknown]
  - Sleep disorder [Unknown]
  - Diarrhoea [Unknown]
  - Fatigue [Unknown]

NARRATIVE: CASE EVENT DATE: 200211
